FAERS Safety Report 7209402-1 (Version None)
Quarter: 2010Q4

REPORT INFORMATION
  Report Type: 
  Country: None (occurrence: None)
  Receive Date: 20101222
  Receipt Date: 20101206
  Transmission Date: 20110411
  Serious: Yes (Other)
  Sender: FDA-Public Use
  Company Number: DSA_44500_2010

PATIENT
  Age: 13 Month
  Sex: Male

DRUGS (1)
  1. ENALAPRIL MALEATE [Suspect]
     Indication: HYPERTENSION
     Dosage: (2.5 MG BID ORAL)
     Route: 048
     Dates: start: 20100413, end: 20100922

REACTIONS (1)
  - DIARRHOEA [None]
